FAERS Safety Report 10364430 (Version 1)
Quarter: 2014Q3

REPORT INFORMATION
  Report Type: Spontaneous
  Country: US (occurrence: None)
  Receive Date: 20140801
  Receipt Date: 20140801
  Transmission Date: 20150326
  Serious: Yes (Other)
  Sender: FDA-Public Use
  Company Number: BB14-284-AE

PATIENT
  Age: 8 Year
  Sex: Male
  Weight: 24.49 kg

DRUGS (2)
  1. OXCARBAZEPINE. [Suspect]
     Active Substance: OXCARBAZEPINE
     Indication: PARTIAL SEIZURES WITH SECONDARY GENERALISATION
     Route: 048
     Dates: start: 201402
  2. KEPPRA [Concomitant]
     Active Substance: LEVETIRACETAM

REACTIONS (12)
  - Panic attack [None]
  - Crying [None]
  - Screaming [None]
  - Ear pain [None]
  - Peripheral coldness [None]
  - Vomiting [None]
  - Insomnia [None]
  - Tremor [None]
  - Anxiety [None]
  - Emotional disorder [None]
  - Cough [None]
  - Depression [None]

NARRATIVE: CASE EVENT DATE: 201403
